FAERS Safety Report 23271560 (Version 1)
Quarter: 2023Q4

REPORT INFORMATION
  Report Type: Spontaneous
  Country: US (occurrence: US)
  Receive Date: 20231207
  Receipt Date: 20231207
  Transmission Date: 20240110
  Serious: No
  Sender: FDA-Public Use
  Company Number: US-Emergent Biosolutions-23000526

PATIENT
  Sex: Female

DRUGS (1)
  1. NARCAN [Suspect]
     Active Substance: NALOXONE HYDROCHLORIDE
     Indication: Overdose
     Dosage: 4 MILLIGRAM (ONE DOSE)
     Route: 045

REACTIONS (5)
  - Feeling abnormal [Unknown]
  - Discomfort [Unknown]
  - Restlessness [Unknown]
  - Pain [Unknown]
  - Withdrawal syndrome [Unknown]
